FAERS Safety Report 8306112 (Version 3)
Quarter: 2018Q3

REPORT INFORMATION
  Report Type: Report from Study
  Country: HK (occurrence: HK)
  Receive Date: 20111221
  Receipt Date: 20180827
  Transmission Date: 20181010
  Serious: Yes (Hospitalization)
  Sender: FDA-Public Use
  Company Number: HK-AMGEN-HKGCT2011067552

PATIENT
  Age: 49 Year
  Sex: Female

DRUGS (7)
  1. PLACEBO [Suspect]
     Active Substance: UNSPECIFIED INGREDIENT
     Indication: BREAST CANCER
     Dosage: UNK, Q3WK
     Route: 058
     Dates: start: 20111010
  2. CALPEROS D3 [Concomitant]
     Active Substance: CALCIUM CARBONATE\CHOLECALCIFEROL
     Dosage: UNK UNK, QD
     Route: 048
     Dates: start: 20111010
  3. G CSFPCGEN [Concomitant]
     Indication: BREAST CANCER
     Dosage: UNK
     Route: 058
     Dates: start: 20111215
  4. DIAMICRON [Concomitant]
     Active Substance: GLICLAZIDE
     Dosage: 30 MG, QD
     Route: 048
     Dates: start: 20111207
  5. METFORMIN HCL [Concomitant]
     Active Substance: METFORMIN HYDROCHLORIDE
     Dosage: 500 MG, BID
     Route: 048
     Dates: start: 20111207
  6. TAXOTERE [Concomitant]
     Active Substance: DOCETAXEL
     Indication: BREAST CANCER
     Dosage: 125 MG, Q3WK
     Route: 042
     Dates: start: 20111213
  7. LISINOPRIL. [Concomitant]
     Active Substance: LISINOPRIL
     Dosage: 5 MG, QD
     Route: 048
     Dates: start: 20111207

REACTIONS (1)
  - Chest pain [Recovered/Resolved]

NARRATIVE: CASE EVENT DATE: 20111218
